FAERS Safety Report 6155073-5 (Version None)
Quarter: 2009Q2

REPORT INFORMATION
  Report Type: 
  Country: None (occurrence: None)
  Receive Date: 20090414
  Receipt Date: 20090330
  Transmission Date: 20091009
  Serious: Yes (Death, Other)
  Sender: FDA-Public Use
  Company Number: US-GENENTECH-281054

PATIENT

DRUGS (1)
  1. AVASTIN [Suspect]
     Indication: GLIOMA
     Dosage: UNK
     Route: 042

REACTIONS (6)
  - DEATH [None]
  - DISEASE PROGRESSION [None]
  - GASTROINTESTINAL PERFORATION [None]
  - HAEMORRHAGE [None]
  - HYPERTENSION [None]
  - RENAL FAILURE CHRONIC [None]
